FAERS Safety Report 5700252-1 (Version None)
Quarter: 2008Q2

REPORT INFORMATION
  Report Type: 
  Country: None (occurrence: None)
  Receive Date: 20080410
  Receipt Date: 20080328
  Transmission Date: 20081010
  Serious: Yes (Other)
  Sender: FDA-Public Use
  Company Number: US-PFIZER INC-2008028321

PATIENT
  Sex: Male
  Weight: 78 kg

DRUGS (3)
  1. CHANTIX [Suspect]
     Indication: SMOKING CESSATION THERAPY
     Route: 048
     Dates: start: 20071101, end: 20080324
  2. PROPECIA [Concomitant]
  3. CELEXA [Concomitant]

REACTIONS (1)
  - CHORIORETINOPATHY [None]
